FAERS Safety Report 6272777-4 (Version None)
Quarter: 2009Q3

REPORT INFORMATION
  Report Type: 
  Country: None (occurrence: None)
  Receive Date: 20090716
  Receipt Date: 20090716
  Transmission Date: 20100115
  Serious: Yes (Hospitalization)
  Sender: FDA-Public Use
  Company Number: None

PATIENT
  Sex: Male

DRUGS (7)
  1. AVASTIN [Suspect]
     Indication: COLON CANCER METASTATIC
     Dosage: 5MG/KG D1-D15 IV
     Route: 042
     Dates: start: 20080908, end: 20090611
  2. OXALIPLATIN [Suspect]
     Indication: COLON CANCER METASTATIC
     Dosage: 85MG/KG D1-D15 IV
     Route: 042
     Dates: start: 20080908, end: 20090611
  3. XELODA [Suspect]
     Indication: COLON CANCER METASTATIC
     Dosage: 750MG/M2 BID PO
     Route: 048
     Dates: start: 20080908, end: 20090611
  4. GLYBURIDE [Concomitant]
  5. SIMVASTATIN [Concomitant]
  6. DIOVAN [Concomitant]
  7. NORVASC [Concomitant]

REACTIONS (2)
  - NAUSEA [None]
  - VOMITING [None]
